FAERS Safety Report 5282565-3 (Version None)
Quarter: 2007Q1

REPORT INFORMATION
  Report Type: 
  Country: None (occurrence: None)
  Receive Date: 20070326
  Receipt Date: 20070313
  Transmission Date: 20070707
  Serious: Yes (Hospitalization)
  Sender: FDA-Public Use
  Company Number: 2007BI005985

PATIENT
  Age: 52 Year
  Sex: Female

DRUGS (1)
  1. AVONEX [Suspect]
     Indication: MULTIPLE SCLEROSIS
     Dosage: 30 UG;QW;IM
     Route: 030
     Dates: start: 20000615

REACTIONS (5)
  - ANEURYSM [None]
  - KNEE OPERATION [None]
  - PULMONARY THROMBOSIS [None]
  - SPLENECTOMY [None]
  - THROMBOSIS [None]
